FAERS Safety Report 4715254-1 (Version None)
Quarter: 2005Q3

REPORT INFORMATION
  Report Type: 
  Country: None (occurrence: None)
  Receive Date: 20050715
  Receipt Date: 20050707
  Transmission Date: 20060218
  Serious: Yes (Other)
  Sender: FDA-Public Use
  Company Number: US-ROCHE-410311

PATIENT
  Age: 46 Year
  Sex: Female

DRUGS (8)
  1. PEGASYS [Suspect]
     Route: 058
     Dates: start: 20041007, end: 20041201
  2. PEGASYS [Suspect]
     Route: 058
     Dates: start: 20041215, end: 20050316
  3. PEGASYS [Suspect]
     Route: 058
     Dates: start: 20050707
  4. RIBASPHERE [Suspect]
     Route: 048
     Dates: start: 20041007, end: 20041201
  5. RIBASPHERE [Suspect]
     Route: 048
     Dates: start: 20041215, end: 20050316
  6. RIBASPHERE [Suspect]
     Route: 048
     Dates: start: 20050707
  7. NEURONTIN [Concomitant]
     Dosage: INITIAL DOSE: 800 MG DAILY; 16 MAR 2005: THE DOSE WAS INCREASED TO 2400 MG DAILY.
  8. TRILEPTAL [Concomitant]
     Dates: start: 20050316

REACTIONS (2)
  - ALOPECIA [None]
  - GRAND MAL CONVULSION [None]
